FAERS Safety Report 14360669 (Version 1)
Quarter: 2018Q1

REPORT INFORMATION
  Report Type: Spontaneous
  Country: FR (occurrence: FR)
  Receive Date: 20180106
  Receipt Date: 20180106
  Transmission Date: 20180509
  Serious: Yes (Death)
  Sender: FDA-Public Use
  Company Number: FR-MYLANLABS-2018M1001130

PATIENT
  Age: 55 Year
  Sex: Male
  Weight: 75 kg

DRUGS (17)
  1. CISATRACURIUM MYLAN [Suspect]
     Active Substance: CISATRACURIUM
     Indication: ANAESTHESIA
     Route: 042
  2. EXACYL [Suspect]
     Active Substance: TRANEXAMIC ACID
     Indication: PRODUCT USED FOR UNKNOWN INDICATION
     Dosage: 1 G, TOTAL
     Route: 042
     Dates: start: 20170714, end: 20170714
  3. PROTAMINE CHOAY [Suspect]
     Active Substance: PROTAMINE
     Indication: HEPARIN NEUTRALISATION THERAPY
     Dosage: 10 000 UI/10 ML
     Route: 042
  4. CUSTODIOL /04792301/ [Suspect]
     Active Substance: CALCIUM CL\HISTIDINE\MAGNESIUM\MANNITOL\POTASSIUM\SODIUM CL\TRYPTOPHAN
     Indication: CARDIOPLEGIA
     Route: 013
  5. NORADRENALINE MYLAN 2 MG/ML SULPHITE FREE SOLUTION FOR INFUSION [Suspect]
     Active Substance: NOREPINEPHRINE
     Indication: HYPOTENSION
     Dosage: 8MG/4ML
     Route: 042
  6. DOBUTAMINE PANPHARMA [Suspect]
     Active Substance: DOBUTAMINE\DOBUTAMINE HYDROCHLORIDE
     Indication: BRADYCARDIA
     Route: 042
  7. LACTATED RINGERS SOLUTION [Suspect]
     Active Substance: CALCIUM CHLORIDE\POTASSIUM CHLORIDE\SODIUM CHLORIDE\SODIUM LACTATE
     Indication: PRODUCT USED FOR UNKNOWN INDICATION
     Route: 042
  8. SUFENTANIL MYLAN [Suspect]
     Active Substance: SUFENTANIL
     Indication: ANAESTHESIA
     Route: 042
  9. RINGERS SOLUTION [Suspect]
     Active Substance: CALCIUM CHLORIDE\POTASSIUM CHLORIDE\SODIUM CHLORIDE
     Indication: PRODUCT USED FOR UNKNOWN INDICATION
     Route: 042
  10. CLOXACILLINE PANPHARMA [Suspect]
     Active Substance: CLOXACILLIN
     Indication: LOCALISED INFECTION
     Route: 042
  11. HEPARINE CHOAY [Suspect]
     Active Substance: HEPARIN SODIUM
     Indication: THROMBOSIS PROPHYLAXIS
     Dosage: .
     Route: 042
  12. CHLORURE DE SODIUM [Suspect]
     Active Substance: SODIUM CHLORIDE
     Indication: PRODUCT USED FOR UNKNOWN INDICATION
     Dosage: CHLORURE DE SODIUM 0.9%
     Route: 042
  13. ETOMIDATE LIPURO [Suspect]
     Active Substance: ETOMIDATE
     Indication: ANAESTHESIA
     Route: 042
  14. MYLAN MIDAZOLAM [Suspect]
     Active Substance: MIDAZOLAM HYDROCHLORIDE
     Indication: ANAESTHESIA
     Route: 042
  15. KETAMINE RENAUDIN [Suspect]
     Active Substance: KETAMINE
     Indication: ANAESTHESIA
     Route: 042
  16. PROPOFOL PANPHARMA [Suspect]
     Active Substance: PROPOFOL
     Indication: ANAESTHESIA
     Route: 042
  17. EPHEDRINE RENAUDIN [Suspect]
     Active Substance: EPHEDRINE HYDROCHLORIDE
     Indication: HYPOTENSION
     Route: 042

REACTIONS (2)
  - Left ventricular failure [Fatal]
  - Cardiogenic shock [Fatal]

NARRATIVE: CASE EVENT DATE: 20170714
